FAERS Safety Report 9472674 (Version 2)
Quarter: 2013Q4

REPORT INFORMATION
  Report Type: Spontaneous
  Country: GB (occurrence: GB)
  Receive Date: 20130823
  Receipt Date: 20131125
  Transmission Date: 20140711
  Serious: Yes (Other)
  Sender: FDA-Public Use
  Company Number: GB-PFIZER INC-2013238443

PATIENT
  Age: 58 Year
  Sex: Female
  Weight: 74.83 kg

DRUGS (4)
  1. DOXYCYCLINE MONOHYDRATE [Suspect]
     Indication: SINUSITIS
     Dosage: UNK
     Route: 048
     Dates: start: 20130708, end: 20130712
  2. SALBUTAMOL [Concomitant]
     Route: 055
  3. SPIRIVA [Concomitant]
  4. SERETIDE [Concomitant]

REACTIONS (7)
  - Pruritus generalised [Not Recovered/Not Resolved]
  - Anosmia [Not Recovered/Not Resolved]
  - Ageusia [Not Recovered/Not Resolved]
  - Decreased appetite [Not Recovered/Not Resolved]
  - Aphagia [Unknown]
  - Weight decreased [Unknown]
  - Nausea [Unknown]
